FAERS Safety Report 5551999-1 (Version None)
Quarter: 2007Q4

REPORT INFORMATION
  Report Type: 
  Country: None (occurrence: None)
  Receive Date: 20071212
  Receipt Date: 20071130
  Transmission Date: 20080405
  Serious: Yes (Hospitalization, Other)
  Sender: FDA-Public Use
  Company Number: US-PFIZER INC-2007102123

PATIENT
  Sex: Female
  Weight: 65.454 kg

DRUGS (5)
  1. CHANTIX [Suspect]
     Indication: SMOKING CESSATION THERAPY
     Dates: start: 20070901, end: 20070901
  2. PRILOSEC [Concomitant]
  3. CLARITIN [Concomitant]
  4. POTASSIUM CHLORIDE [Concomitant]
  5. CENTRUM [Concomitant]

REACTIONS (9)
  - AGGRESSION [None]
  - ANXIETY [None]
  - EMOTIONAL DISORDER [None]
  - FEELING ABNORMAL [None]
  - HEADACHE [None]
  - MIGRAINE [None]
  - NAUSEA [None]
  - SUICIDE ATTEMPT [None]
  - WEIGHT INCREASED [None]
